FAERS Safety Report 14824237 (Version 1)
Quarter: 2018Q2

REPORT INFORMATION
  Report Type: Spontaneous
  Country: US (occurrence: US)
  Receive Date: 20180428
  Receipt Date: 20180428
  Transmission Date: 20180711
  Serious: No
  Sender: FDA-Public Use
  Company Number: US-JNJFOC-20180414286

PATIENT
  Age: 64 Year
  Sex: Female
  Weight: 49.9 kg

DRUGS (2)
  1. NIZORAL A-D [Suspect]
     Active Substance: KETOCONAZOLE
     Indication: ERYTHEMA
     Dosage: ONE PERCENT
     Route: 061
  2. NIZORAL A-D [Suspect]
     Active Substance: KETOCONAZOLE
     Indication: ALOPECIA
     Dosage: ONE PERCENT
     Route: 061

REACTIONS (1)
  - Product use in unapproved indication [Unknown]
